FAERS Safety Report 22688388 (Version 3)
Quarter: 2023Q4

REPORT INFORMATION
  Report Type: Report from Study
  Country: MX (occurrence: MX)
  Receive Date: 20230710
  Receipt Date: 20231208
  Transmission Date: 20240110
  Serious: Yes (Death, Hospitalization, Other)
  Sender: FDA-Public Use
  Company Number: MX-TAKEDA-2022TUS015550

PATIENT
  Age: 54 Year
  Sex: Female
  Weight: 55 kg

DRUGS (2)
  1. PONATINIB [Suspect]
     Active Substance: PONATINIB
     Indication: Chronic myeloid leukaemia
     Dosage: 45 MILLIGRAM, QD
     Route: 048
     Dates: start: 20220125, end: 202303
  2. PONATINIB [Suspect]
     Active Substance: PONATINIB
     Dosage: 45 MILLIGRAM, QD
     Route: 048
     Dates: start: 20230502

REACTIONS (24)
  - Chronic myeloid leukaemia [Fatal]
  - Acute respiratory distress syndrome [Fatal]
  - Haemoglobin decreased [Recovered/Resolved]
  - Thrombocytopenia [Recovering/Resolving]
  - Pallor [Not Recovered/Not Resolved]
  - Alopecia [Recovering/Resolving]
  - Malaise [Recovering/Resolving]
  - Headache [Recovering/Resolving]
  - Abdominal distension [Recovering/Resolving]
  - Dizziness [Unknown]
  - Skin exfoliation [Recovered/Resolved]
  - Fatigue [Not Recovered/Not Resolved]
  - Pyrexia [Recovering/Resolving]
  - Asthenia [Recovering/Resolving]
  - Dropped head syndrome [Recovering/Resolving]
  - Thyroid function test abnormal [Recovering/Resolving]
  - Skin hypertrophy [Unknown]
  - Pollakiuria [Recovered/Resolved]
  - Swelling [Recovered/Resolved]
  - Skin disorder [Recovered/Resolved]
  - Blood disorder [Recovered/Resolved]
  - Splenomegaly [Unknown]
  - Inappropriate schedule of product administration [Unknown]
  - Product distribution issue [Unknown]

NARRATIVE: CASE EVENT DATE: 20220221
